FAERS Safety Report 17342802 (Version 1)
Quarter: 2020Q1

REPORT INFORMATION
  Report Type: Spontaneous
  Country: US (occurrence: US)
  Receive Date: 20200129
  Receipt Date: 20200129
  Transmission Date: 20200409
  Serious: No
  Sender: FDA-Public Use
  Company Number: US-ALLERGAN-1933010US

PATIENT
  Age: 42 Year
  Sex: Female
  Weight: 61.22 kg

DRUGS (7)
  1. BOTOX COSMETIC [Suspect]
     Active Substance: ONABOTULINUMTOXINA
     Indication: SKIN WRINKLING
     Dosage: 3 UNITS, SINGLE
     Dates: start: 20181206, end: 20181206
  2. BOTOX COSMETIC [Suspect]
     Active Substance: ONABOTULINUMTOXINA
     Indication: SKIN WRINKLING
     Dosage: 4 UNITS (2 UNITS EACH SIDE), SINGLE
     Dates: start: 20181206, end: 20181206
  3. BOTOX COSMETIC [Suspect]
     Active Substance: ONABOTULINUMTOXINA
     Indication: SKIN WRINKLING
     Dosage: 10 UNITS, SINGLE
     Dates: start: 20181206, end: 20181206
  4. MULTIVITAMIN [Concomitant]
     Active Substance: VITAMINS
  5. BOTOX COSMETIC [Suspect]
     Active Substance: ONABOTULINUMTOXINA
     Indication: SKIN WRINKLING
     Dosage: 10 UNITS, SINGLE
     Dates: start: 20181206, end: 20181206
  6. WELLBUTRIN [Concomitant]
     Active Substance: BUPROPION HYDROCHLORIDE
  7. BOTOX COSMETIC [Suspect]
     Active Substance: ONABOTULINUMTOXINA
     Indication: SKIN WRINKLING
     Dosage: 4 UNITS (RIGHT 3 UNITS, LEFT 1 UNIT), SINGLE
     Dates: start: 20181206, end: 20181206

REACTIONS (5)
  - Face oedema [Recovered/Resolved]
  - Off label use [Unknown]
  - Facial asymmetry [Recovered/Resolved]
  - Injection site paraesthesia [Recovered/Resolved]
  - Injection site hypoaesthesia [Recovered/Resolved]

NARRATIVE: CASE EVENT DATE: 20181206
